FAERS Safety Report 8262280-4 (Version None)
Quarter: 2012Q2

REPORT INFORMATION
  Report Type: 
  Country: None (occurrence: None)
  Receive Date: 20120405
  Receipt Date: 20120323
  Transmission Date: 20120825
  Serious: Yes (Other)
  Sender: FDA-Public Use
  Company Number: GB-ELI_LILLY_AND_COMPANY-GB201203006965

PATIENT
  Age: 68 Year
  Sex: Male
  Weight: 80.75 kg

DRUGS (2)
  1. TERAZOSIN HCL [Concomitant]
     Dosage: UNK
     Dates: start: 20111129
  2. TADALAFIL [Suspect]
     Dosage: UNK
     Route: 002
     Dates: start: 20111212, end: 20120109

REACTIONS (1)
  - DYSURIA [None]
